FAERS Safety Report 20848838 (Version 2)
Quarter: 2022Q3

REPORT INFORMATION
  Report Type: Report from Study
  Country: DE (occurrence: DE)
  Receive Date: 20220519
  Receipt Date: 20220708
  Transmission Date: 20221026
  Serious: Yes (Hospitalization)
  Sender: FDA-Public Use
  Company Number: DE-BRISTOL-MYERS SQUIBB COMPANY-2022-022833

PATIENT
  Age: 73 Year
  Sex: Male
  Weight: 79 kg

DRUGS (32)
  1. LENALIDOMIDE [Suspect]
     Active Substance: LENALIDOMIDE
     Indication: Non-Hodgkin^s lymphoma
     Route: 048
     Dates: start: 20220322
  2. LENALIDOMIDE [Suspect]
     Active Substance: LENALIDOMIDE
     Route: 048
     Dates: start: 20220327
  3. MOSUNETUZUMAB [Suspect]
     Active Substance: MOSUNETUZUMAB
     Indication: Non-Hodgkin^s lymphoma
     Route: 042
     Dates: start: 20220222
  4. MOSUNETUZUMAB [Suspect]
     Active Substance: MOSUNETUZUMAB
     Dosage: FROM 10:30AM TO 1:00PM
     Route: 042
     Dates: start: 20220322
  5. TOCILIZUMAB [Suspect]
     Active Substance: TOCILIZUMAB
     Indication: Cytokine release syndrome
     Dosage: AS REQUIRED
     Route: 042
     Dates: start: 20220325, end: 20220325
  6. ALLOPURINOL [Concomitant]
     Active Substance: ALLOPURINOL
     Indication: Prophylaxis
     Route: 048
  7. ALLOPURINOL [Concomitant]
     Active Substance: ALLOPURINOL
     Route: 048
  8. ALLOPURINOL [Concomitant]
     Active Substance: ALLOPURINOL
     Dosage: 300 MG,1 IN 1 D
     Route: 048
     Dates: start: 20220225
  9. CLEMASTINE [Concomitant]
     Active Substance: CLEMASTINE
     Indication: Prophylaxis
     Dosage: AS REQUIRED
     Route: 042
  10. CLEMASTINE [Concomitant]
     Active Substance: CLEMASTINE
     Dosage: AS REQUIRED
     Route: 042
  11. CLEMASTINE [Concomitant]
     Active Substance: CLEMASTINE
     Dosage: AS REQUIRED
     Route: 042
     Dates: start: 20220322
  12. CLEMASTINE [Concomitant]
     Active Substance: CLEMASTINE
     Dosage: AS REQUIRED
     Route: 048
     Dates: start: 20220322
  13. CLEMASTINE [Concomitant]
     Active Substance: CLEMASTINE
     Dosage: 1000 MG,AS REQUIRED
     Route: 048
     Dates: start: 20220323
  14. CLEMASTINE [Concomitant]
     Active Substance: CLEMASTINE
     Dosage: 2 MG,AS REQUIRED
     Route: 042
     Dates: start: 20220225
  15. ASPIRIN [Concomitant]
     Active Substance: ASPIRIN
     Dosage: 1 IN 1 D
     Route: 048
  16. ASPIRIN [Concomitant]
     Active Substance: ASPIRIN
     Indication: Non-Hodgkin^s lymphoma unspecified histology indolent
     Dosage: 1 IN 1 D
     Route: 048
  17. ASPIRIN [Concomitant]
     Active Substance: ASPIRIN
     Indication: Prophylaxis
     Dosage: 1 IN 1 D
     Route: 048
     Dates: start: 20220325
  18. ASPIRIN [Concomitant]
     Active Substance: ASPIRIN
     Dosage: 100 MG,1 IN 1 D
     Route: 048
     Dates: start: 20220322
  19. PIPERACILLIN SODIUM\TAZOBACTAM SODIUM [Concomitant]
     Active Substance: PIPERACILLIN SODIUM\TAZOBACTAM SODIUM
     Indication: Infection
     Dosage: 1 IN 3 D
     Route: 042
     Dates: start: 20220324, end: 20220401
  20. PIPERACILLIN SODIUM\TAZOBACTAM SODIUM [Concomitant]
     Active Substance: PIPERACILLIN SODIUM\TAZOBACTAM SODIUM
  21. CALCIUM CHLORIDE\MAGNESIUM CHLORIDE\POTASSIUM CHLORIDE\SODIUM ACETATE\ [Concomitant]
     Active Substance: CALCIUM CHLORIDE\MAGNESIUM CHLORIDE\POTASSIUM CHLORIDE\SODIUM ACETATE\SODIUM CHLORIDE
     Indication: Cytokine release syndrome
     Dosage: AS REQUIRED
     Route: 042
     Dates: start: 20220324, end: 20220331
  22. CALCIUM CHLORIDE\MAGNESIUM CHLORIDE\POTASSIUM CHLORIDE\SODIUM ACETATE\ [Concomitant]
     Active Substance: CALCIUM CHLORIDE\MAGNESIUM CHLORIDE\POTASSIUM CHLORIDE\SODIUM ACETATE\SODIUM CHLORIDE
     Dosage: AS REQUIRED
     Route: 042
  23. CALCIUM CHLORIDE\MAGNESIUM CHLORIDE\POTASSIUM CHLORIDE\SODIUM ACETATE\ [Concomitant]
     Active Substance: CALCIUM CHLORIDE\MAGNESIUM CHLORIDE\POTASSIUM CHLORIDE\SODIUM ACETATE\SODIUM CHLORIDE
     Dosage: AS REQUIRED
     Route: 042
  24. CALCIUM CHLORIDE\MAGNESIUM CHLORIDE\POTASSIUM CHLORIDE\SODIUM ACETATE\ [Concomitant]
     Active Substance: CALCIUM CHLORIDE\MAGNESIUM CHLORIDE\POTASSIUM CHLORIDE\SODIUM ACETATE\SODIUM CHLORIDE
     Dosage: AS REQUIRED
     Route: 042
  25. CALCIUM CHLORIDE\MAGNESIUM CHLORIDE\POTASSIUM CHLORIDE\SODIUM ACETATE\ [Concomitant]
     Active Substance: CALCIUM CHLORIDE\MAGNESIUM CHLORIDE\POTASSIUM CHLORIDE\SODIUM ACETATE\SODIUM CHLORIDE
     Dosage: 1000 ML,AS REQUIRED
     Route: 042
     Dates: start: 20220225
  26. BACLOFEN [Concomitant]
     Active Substance: BACLOFEN
     Indication: Hiccups
     Dosage: AS REQUIRED
     Route: 048
  27. BACLOFEN [Concomitant]
     Active Substance: BACLOFEN
     Dosage: AS REQUIRED
     Route: 048
  28. BACLOFEN [Concomitant]
     Active Substance: BACLOFEN
     Dosage: 5 MG,AS REQUIRED
     Route: 048
     Dates: start: 20220326
  29. DEXAMETHASONE [Concomitant]
     Active Substance: DEXAMETHASONE
     Indication: Prophylaxis
     Dosage: 20 MG, AS REQUIRED
     Route: 042
     Dates: start: 20220225
  30. DEXAMETHASONE [Concomitant]
     Active Substance: DEXAMETHASONE
     Indication: Hiccups
     Route: 042
     Dates: start: 20220325
  31. ACETAMINOPHEN [Concomitant]
     Active Substance: ACETAMINOPHEN
     Indication: Prophylaxis
     Route: 048
     Dates: start: 20220225
  32. ACETAMINOPHEN [Concomitant]
     Active Substance: ACETAMINOPHEN
     Indication: Cytokine release syndrome
     Route: 048
     Dates: start: 20220323, end: 20220324

REACTIONS (1)
  - General physical health deterioration [Recovered/Resolved]

NARRATIVE: CASE EVENT DATE: 20220405
